FAERS Safety Report 14706959 (Version 3)
Quarter: 2018Q3

REPORT INFORMATION
  Report Type: Report from Study
  Country: None (occurrence: US)
  Receive Date: 20180403
  Receipt Date: 20180924
  Transmission Date: 20181010
  Serious: Yes (Other)
  Sender: FDA-Public Use
  Company Number: US-ABBVIE-18K-163-2294774-00

PATIENT
  Age: 79 Year
  Sex: Female
  Weight: 47.22 kg

DRUGS (12)
  1. KLOR?CON [Concomitant]
     Active Substance: POTASSIUM CHLORIDE
     Indication: BLOOD POTASSIUM DECREASED
  2. NIZATIDINE. [Concomitant]
     Active Substance: NIZATIDINE
     Indication: ULCER HAEMORRHAGE
  3. HUMIRA [Suspect]
     Active Substance: ADALIMUMAB
     Indication: RHEUMATOID ARTHRITIS
     Route: 058
     Dates: start: 201505
  4. TIZANIDINE. [Concomitant]
     Active Substance: TIZANIDINE
     Indication: SLEEP DISORDER THERAPY
  5. ALEVE [Concomitant]
     Active Substance: NAPROXEN SODIUM
     Indication: PAIN
  6. FOLIC ACID. [Concomitant]
     Active Substance: FOLIC ACID
     Indication: VITAMIN SUPPLEMENTATION
  7. METHOTREXATE. [Concomitant]
     Active Substance: METHOTREXATE
     Indication: RHEUMATOID ARTHRITIS
  8. TYLENOL [Concomitant]
     Active Substance: ACETAMINOPHEN
     Indication: PAIN
  9. SPIRONOLACTONE AND HYDROCHLOROTHIAZIDE [Concomitant]
     Active Substance: HYDROCHLOROTHIAZIDE\SPIRONOLACTONE
     Indication: SWELLING
  10. VITAMIN C [Concomitant]
     Active Substance: ASCORBIC ACID
     Indication: VITAMIN SUPPLEMENTATION
  11. DULOXETINE. [Concomitant]
     Active Substance: DULOXETINE
     Indication: MYALGIA
  12. ASPIRIN. [Concomitant]
     Active Substance: ASPIRIN
     Indication: CARDIAC DISORDER

REACTIONS (6)
  - Hypoaesthesia [Recovered/Resolved]
  - Fall [Recovered/Resolved]
  - Pain in extremity [Unknown]
  - Osteoarthritis [Not Recovered/Not Resolved]
  - Sensitivity to weather change [Unknown]
  - Nerve compression [Unknown]

NARRATIVE: CASE EVENT DATE: 201609
